FAERS Safety Report 20002387 (Version 9)
Quarter: 2021Q4

REPORT INFORMATION
  Report Type: Report from Study
  Country: CN (occurrence: None)
  Receive Date: 20211027
  Receipt Date: 20211126
  Transmission Date: 20220303
  Serious: Yes (Death, Life-Threatening, Hospitalization)
  Sender: FDA-Public Use
  Company Number: CN-EISAI MEDICAL RESEARCH-EC-2021-102134

PATIENT
  Age: 63 Year
  Sex: Female
  Weight: 81 kg

DRUGS (16)
  1. LENVATINIB [Suspect]
     Active Substance: LENVATINIB
     Indication: Endometrial cancer
     Route: 048
     Dates: start: 20210916, end: 20211020
  2. PEMBROLIZUMAB [Suspect]
     Active Substance: PEMBROLIZUMAB
     Indication: Endometrial cancer
     Route: 042
     Dates: start: 20210916, end: 20210916
  3. PEMBROLIZUMAB [Suspect]
     Active Substance: PEMBROLIZUMAB
     Route: 042
     Dates: start: 20211009, end: 20211009
  4. NIFEDIPINE [Concomitant]
     Active Substance: NIFEDIPINE
     Dates: start: 20210922
  5. NIFEDIPINE [Concomitant]
     Active Substance: NIFEDIPINE
     Dates: start: 201612
  6. XIAO KE WAN [Concomitant]
     Dates: start: 20210917
  7. LEVOTHYROXINE SODIUM [Concomitant]
     Active Substance: LEVOTHYROXINE SODIUM
     Dates: start: 20210919
  8. CAPTOPRIL [Concomitant]
     Active Substance: CAPTOPRIL
     Dates: start: 201612
  9. REMIFENTANIL HYDROCHLORIDE [Concomitant]
     Active Substance: REMIFENTANIL HYDROCHLORIDE
     Route: 042
     Dates: start: 20211020, end: 20211020
  10. MIDAZOLAM [Concomitant]
     Active Substance: MIDAZOLAM
     Route: 042
     Dates: start: 20211020, end: 20211020
  11. INSULIN NOS [Concomitant]
     Active Substance: INSULIN NOS
     Route: 042
     Dates: start: 20211020, end: 20211020
  12. PYRIDOXINE [Concomitant]
     Active Substance: PYRIDOXINE
     Route: 042
     Dates: start: 20211020, end: 20211020
  13. DEXTROSE [Concomitant]
     Active Substance: DEXTROSE
     Route: 042
     Dates: start: 20211020, end: 20211020
  14. ASCORBIC ACID [Concomitant]
     Active Substance: ASCORBIC ACID
     Route: 042
     Dates: start: 20211020, end: 20211020
  15. POTASSIUM CHLORIDE [Concomitant]
     Active Substance: POTASSIUM CHLORIDE
     Route: 042
     Dates: start: 20211020, end: 20211020
  16. POTASSIUM CHLORIDE [Concomitant]
     Active Substance: POTASSIUM CHLORIDE
     Route: 030
     Dates: start: 20211020, end: 20211020

REACTIONS (1)
  - Subarachnoid haemorrhage [Fatal]

NARRATIVE: CASE EVENT DATE: 20211020
